FAERS Safety Report 8045448-1 (Version None)
Quarter: 2012Q1

REPORT INFORMATION
  Report Type: 
  Country: None (occurrence: None)
  Receive Date: 20120113
  Receipt Date: 20120104
  Transmission Date: 20120608
  Serious: Yes (Hospitalization, Other)
  Sender: FDA-Public Use
  Company Number: US-BRISTOL-MYERS SQUIBB COMPANY-16324063

PATIENT
  Sex: Female
  Weight: 122 kg

DRUGS (29)
  1. COUMADIN [Suspect]
     Indication: ATRIAL FIBRILLATION
     Dosage: AT LEAST 6 MONTHS EACH OF 3 DIFFERENT TIMES, PREVIOUSLY TAKEN FOR SEVERAL YEARS.
     Route: 048
  2. SYNTHROID [Concomitant]
  3. FUROSEMIDE [Concomitant]
  4. GLUCOSAMINE [Concomitant]
  5. VITAMIN D [Concomitant]
  6. GARLIC [Concomitant]
  7. CALCIUM [Concomitant]
  8. ZINC [Concomitant]
  9. SELENIUM [Concomitant]
  10. COREG [Concomitant]
  11. BIOTENE MOUTHWASH [Concomitant]
  12. MAGNESIUM [Concomitant]
  13. MULTI-VITAMIN [Concomitant]
  14. COQ10 [Concomitant]
  15. ASPIRIN [Concomitant]
  16. PRAVACHOL [Concomitant]
  17. RESTORIL [Concomitant]
  18. VAGIFEM [Concomitant]
  19. LUTEIN [Concomitant]
  20. MOMETASONE FUROATE [Concomitant]
  21. MILK THISTLE [Concomitant]
  22. ACIDOPHILUS [Concomitant]
  23. VITAMIN E [Concomitant]
  24. VITAMIN B-12 [Concomitant]
  25. CLARINEX [Concomitant]
  26. NASONEX [Concomitant]
  27. FISH OIL [Concomitant]
  28. VITAMIN C [Concomitant]
  29. BILBERRY [Concomitant]

REACTIONS (3)
  - PRURITUS [None]
  - ATRIAL FIBRILLATION [None]
  - DRY SKIN [None]
